FAERS Safety Report 7330164-1 (Version None)
Quarter: 2011Q1

REPORT INFORMATION
  Report Type: 
  Country: None (occurrence: None)
  Receive Date: 20110303
  Receipt Date: 20110216
  Transmission Date: 20110831
  Serious: Yes (Hospitalization, Other)
  Sender: FDA-Public Use
  Company Number: US-BIOGENIDEC-2010BI001865

PATIENT
  Age: 46 Year
  Sex: Female
  Weight: 57 kg

DRUGS (10)
  1. DETROL LA [Concomitant]
     Indication: URINARY INCONTINENCE
  2. DETROL LA [Concomitant]
     Indication: MICTURITION URGENCY
  3. LEXAPRO [Concomitant]
     Indication: DEPRESSION
  4. TYSABRI [Suspect]
     Indication: MULTIPLE SCLEROSIS
     Route: 042
     Dates: start: 20080205, end: 20091229
  5. ADDERALL 10 [Concomitant]
     Indication: FATIGUE
     Route: 048
  6. DETROL LA [Concomitant]
     Indication: POLLAKIURIA
  7. NEURONTIN [Concomitant]
     Indication: PRODUCT USED FOR UNKNOWN INDICATION
  8. BACLOFEN [Concomitant]
     Indication: MUSCLE SPASTICITY
  9. KLONOPIN [Concomitant]
     Indication: PRODUCT USED FOR UNKNOWN INDICATION
  10. REQUIP [Concomitant]
     Indication: PRODUCT USED FOR UNKNOWN INDICATION

REACTIONS (6)
  - URINARY TRACT INFECTION PSEUDOMONAL [None]
  - PROGRESSIVE MULTIFOCAL LEUKOENCEPHALOPATHY [None]
  - DIABETES MELLITUS [None]
  - CREPITATIONS [None]
  - IMMUNE RECONSTITUTION SYNDROME [None]
  - DECUBITUS ULCER [None]
